FAERS Safety Report 19222508 (Version 1)
Quarter: 2021Q2

REPORT INFORMATION
  Report Type: Spontaneous
  Country: US (occurrence: US)
  Receive Date: 20210505
  Receipt Date: 20210505
  Transmission Date: 20210717
  Serious: Yes (Death)
  Sender: FDA-Public Use
  Company Number: None

PATIENT
  Age: 68 Year
  Sex: Male

DRUGS (17)
  1. CYCLOBENZAPINE [Concomitant]
  2. LANTUS [Concomitant]
     Active Substance: INSULIN GLARGINE
  3. OMEPRAZOLE. [Concomitant]
     Active Substance: OMEPRAZOLE
  4. HUMALOG [Concomitant]
     Active Substance: INSULIN LISPRO
  5. JAKAFI [Concomitant]
     Active Substance: RUXOLITINIB
  6. URSODIOL. [Concomitant]
     Active Substance: URSODIOL
  7. AMLODIPINE [Concomitant]
     Active Substance: AMLODIPINE BESYLATE
  8. PREGABALIN. [Concomitant]
     Active Substance: PREGABALIN
  9. PROCHLOPERAZINE [Concomitant]
  10. VALGANCICLOVIR. [Concomitant]
     Active Substance: VALGANCICLOVIR
  11. ATROVASTATIN [Concomitant]
     Active Substance: ATORVASTATIN CALCIUM
  12. FLUCONAZOLE. [Concomitant]
     Active Substance: FLUCONAZOLE
  13. MAG?OXIDE [Concomitant]
     Active Substance: MAGNESIUM OXIDE
  14. ACETAMINOPHEN. [Concomitant]
     Active Substance: ACETAMINOPHEN
  15. CRESEMIBE [Concomitant]
  16. PREDNISONE. [Concomitant]
     Active Substance: PREDNISONE
  17. TACROLIMUS 0.5 MG [Suspect]
     Active Substance: TACROLIMUS
     Indication: STEM CELL TRANSPLANT
     Route: 048
     Dates: start: 20200113, end: 20210430

REACTIONS (1)
  - Death [None]
